FAERS Safety Report 8186221-3 (Version None)
Quarter: 2012Q1

REPORT INFORMATION
  Report Type: 
  Country: None (occurrence: None)
  Receive Date: 20120306
  Receipt Date: 20120301
  Transmission Date: 20120608
  Serious: No
  Sender: FDA-Public Use
  Company Number: US-PFIZER INC-2009305285

PATIENT
  Sex: Female

DRUGS (1)
  1. VISTARIL [Suspect]
     Indication: MULTIPLE ALLERGIES
     Dosage: 50 MG, 4X/DAY

REACTIONS (1)
  - FATIGUE [None]
